FAERS Safety Report 24535741 (Version 2)
Quarter: 2025Q1

REPORT INFORMATION
  Report Type: Spontaneous
  Country: US (occurrence: US)
  Receive Date: 20241022
  Receipt Date: 20250307
  Transmission Date: 20250408
  Serious: No
  Sender: PFIZER
  Company Number: US-PFIZER INC-PV202400135743

PATIENT
  Age: 28 Year
  Sex: Male

DRUGS (6)
  1. XELJANZ XR [Suspect]
     Active Substance: TOFACITINIB CITRATE
     Indication: Rheumatoid arthritis
     Dosage: 11 MG, DAILY
     Route: 048
     Dates: start: 20240925, end: 202502
  2. PREDNISONE [Concomitant]
     Active Substance: PREDNISONE
     Indication: Arthralgia
     Dates: start: 2024, end: 2024
  3. PREDNISONE [Concomitant]
     Active Substance: PREDNISONE
     Indication: Musculoskeletal stiffness
     Dates: start: 2025
  4. PREDNISONE [Concomitant]
     Active Substance: PREDNISONE
     Indication: Movement disorder
  5. PREDNISONE [Concomitant]
     Active Substance: PREDNISONE
     Indication: Arthritis
  6. PREDNISONE [Concomitant]
     Active Substance: PREDNISONE
     Indication: Pyrexia

REACTIONS (2)
  - Drug ineffective [Unknown]
  - Condition aggravated [Recovered/Resolved]

NARRATIVE: CASE EVENT DATE: 20241001
